FAERS Safety Report 9294187 (Version 1)
Quarter: 2013Q2

REPORT INFORMATION
  Report Type: Spontaneous
  Country: US (occurrence: US)
  Receive Date: 20130516
  Receipt Date: 20130516
  Transmission Date: 20140414
  Serious: Yes (Other)
  Sender: FDA-Public Use
  Company Number: US-TEVA-405175USA

PATIENT
  Sex: Female

DRUGS (2)
  1. QVAR [Suspect]
     Indication: PRODUCT USED FOR UNKNOWN INDICATION
  2. PROAIR HFA [Suspect]
     Indication: PRODUCT USED FOR UNKNOWN INDICATION

REACTIONS (1)
  - Dementia [Not Recovered/Not Resolved]
